FAERS Safety Report 15110259 (Version 1)
Quarter: 2018Q3

REPORT INFORMATION
  Report Type: Spontaneous
  Country: ES (occurrence: ES)
  Receive Date: 20180705
  Receipt Date: 20180705
  Transmission Date: 20181010
  Serious: Yes (Other)
  Sender: FDA-Public Use
  Company Number: PHHY2018ES036846

PATIENT
  Age: 90 Year
  Sex: Female
  Weight: 60 kg

DRUGS (1)
  1. LEVOFLOXACIN. [Suspect]
     Active Substance: LEVOFLOXACIN
     Indication: RESPIRATORY TRACT INFECTION
     Dosage: 500 MG, QD
     Route: 048
     Dates: start: 20180317, end: 20180322

REACTIONS (2)
  - Tendon pain [Recovering/Resolving]
  - Joint range of motion decreased [Recovering/Resolving]

NARRATIVE: CASE EVENT DATE: 20180322
